FAERS Safety Report 5868169-X (Version None)
Quarter: 2008Q3

REPORT INFORMATION
  Report Type: 
  Country: None (occurrence: None)
  Receive Date: 20080902
  Receipt Date: 20080821
  Transmission Date: 20090109
  Serious: Yes (Hospitalization)
  Sender: FDA-Public Use
  Company Number: IT-GILEAD-2008-0017873

PATIENT
  Sex: Male

DRUGS (2)
  1. VIREAD [Suspect]
     Route: 048
     Dates: start: 20080525, end: 20080715
  2. KALETRA [Concomitant]

REACTIONS (3)
  - HYPERKALAEMIA [None]
  - METABOLIC ACIDOSIS [None]
  - RENAL FAILURE ACUTE [None]
